FAERS Safety Report 7095177-6 (Version None)
Quarter: 2010Q4

REPORT INFORMATION
  Report Type: 
  Country: None (occurrence: None)
  Receive Date: 20101025
  Receipt Date: 20101012
  Transmission Date: 20110411
  Serious: Yes (Hospitalization, Other)
  Sender: FDA-Public Use
  Company Number: US-145077

PATIENT
  Sex: Female
  Weight: 79.3 kg

DRUGS (2)
  1. WINRHO SDF LIQUID [Suspect]
     Indication: IDIOPATHIC THROMBOCYTOPENIC PURPURA
     Dosage: (50.44 ?G/KG INTRAVENOUS)
     Route: 042
     Dates: start: 20100712
  2. ORAL CONTRACEPTIVE NOS [Concomitant]

REACTIONS (14)
  - BACTERAEMIA [None]
  - CHILLS [None]
  - DIALYSIS [None]
  - DIARRHOEA [None]
  - EPSTEIN-BARR VIRUS INFECTION [None]
  - HAEMATEMESIS [None]
  - HAEMATOCRIT DECREASED [None]
  - HAEMOGLOBIN DECREASED [None]
  - HAEMOLYSIS [None]
  - HEADACHE [None]
  - NAUSEA [None]
  - RENAL FAILURE [None]
  - STAPHYLOCOCCAL INFECTION [None]
  - VOMITING [None]
